FAERS Safety Report 26200737 (Version 1)
Quarter: 2025Q4

REPORT INFORMATION
  Report Type: Spontaneous
  Country: US (occurrence: US)
  Receive Date: 20251226
  Receipt Date: 20251226
  Transmission Date: 20260117
  Serious: Yes (Other)
  Sender: STRIDES
  Company Number: US-STRIDES ARCOLAB LIMITED-2025SP015450

PATIENT
  Age: 81 Year
  Sex: Male

DRUGS (12)
  1. FLUCYTOSINE [Suspect]
     Active Substance: FLUCYTOSINE
     Indication: Balamuthia infection
     Dosage: 3000 MILLIGRAM, EVERY 6 HRS, 4 WEEK
     Route: 065
  2. FLUCYTOSINE [Suspect]
     Active Substance: FLUCYTOSINE
     Indication: Encephalitis
  3. ALBENDAZOLE [Suspect]
     Active Substance: ALBENDAZOLE
     Indication: Balamuthia infection
     Dosage: 400 MILLIGRAM, 0.5 DAY, 3 WEEKS
     Route: 065
  4. ALBENDAZOLE [Suspect]
     Active Substance: ALBENDAZOLE
     Indication: Encephalitis
  5. AZITHROMYCIN [Suspect]
     Active Substance: AZITHROMYCIN
     Indication: Balamuthia infection
     Dosage: 500 MILLIGRAM, QD
     Route: 065
  6. AZITHROMYCIN [Suspect]
     Active Substance: AZITHROMYCIN
     Indication: Encephalitis
  7. SULFADIAZINE [Suspect]
     Active Substance: SULFADIAZINE
     Indication: Balamuthia infection
     Dosage: 1500 MILLIGRAM, EVERY 6 HRS, 3 MONTHS
     Route: 065
  8. SULFADIAZINE [Suspect]
     Active Substance: SULFADIAZINE
     Indication: Encephalitis
  9. MILTEFOSINE [Concomitant]
     Active Substance: MILTEFOSINE
     Indication: Balamuthia infection
     Dosage: 50 MILLIGRAM, 3 TIMES DAILY
     Route: 065
  10. MILTEFOSINE [Concomitant]
     Active Substance: MILTEFOSINE
     Indication: Encephalitis
  11. FLUCONAZOLE [Concomitant]
     Active Substance: FLUCONAZOLE
     Indication: Balamuthia infection
     Dosage: 1000 MILLIGRAM, QD
     Route: 065
  12. FLUCONAZOLE [Concomitant]
     Active Substance: FLUCONAZOLE
     Indication: Encephalitis

REACTIONS (6)
  - Liver injury [Recovering/Resolving]
  - Acute kidney injury [Recovering/Resolving]
  - Toxicity to various agents [Recovering/Resolving]
  - Nausea [Recovering/Resolving]
  - Vomiting [Recovering/Resolving]
  - Off label use [Unknown]
